FAERS Safety Report 21792709 (Version 1)
Quarter: 2022Q4

REPORT INFORMATION
  Report Type: Spontaneous
  Country: US (occurrence: US)
  Receive Date: 20221229
  Receipt Date: 20221229
  Transmission Date: 20230113
  Serious: No
  Sender: FDA-Public Use
  Company Number: US-drreddys-SPO/USA/22/0158290

PATIENT
  Age: 15 Year
  Sex: Female

DRUGS (3)
  1. ACCUTANE [Suspect]
     Active Substance: ISOTRETINOIN
     Indication: Product used for unknown indication
     Dosage: RMA ISSUE DATE: 25 JULY 2022 09:30:30 AM, 01 SEPTEMBER 2022 08:01:00 AM, 06 OCTOBER 2022 09:57:32 AM
  2. ISOTRETINOIN [Concomitant]
     Active Substance: ISOTRETINOIN
     Indication: Product used for unknown indication
     Dosage: RMA ISSUE DATE: 27 JUNE 2022 04:01:45 PM
  3. CLARAVIS [Concomitant]
     Active Substance: ISOTRETINOIN
     Indication: Product used for unknown indication
     Dosage: RMA ISSUE DATE: 27 MAY 2022 10:39:47 AM

REACTIONS (1)
  - Weight decreased [Unknown]
